FAERS Safety Report 6628166-3 (Version None)
Quarter: 2010Q1

REPORT INFORMATION
  Report Type: 
  Country: None (occurrence: None)
  Receive Date: 20100308
  Receipt Date: 20100223
  Transmission Date: 20100710
  Serious: Yes (Hospitalization, Other)
  Sender: FDA-Public Use
  Company Number: TPA2010A00828

PATIENT
  Sex: Male

DRUGS (2)
  1. PREVACID [Suspect]
     Indication: DYSPEPSIA
     Dosage: 30 MG, 1 IN 1 D, PER ORAL EARLY NINETIES
     Route: 048
     Dates: end: 20090101
  2. PREVACID [Suspect]
     Indication: GASTRIC ULCER
     Dosage: 30 MG, 1 IN 1 D, PER ORAL EARLY NINETIES
     Route: 048
     Dates: end: 20090101

REACTIONS (5)
  - CHOLECYSTOSTOMY [None]
  - CONDITION AGGRAVATED [None]
  - DIVERTICULITIS [None]
  - HERNIA [None]
  - LARGE INTESTINE PERFORATION [None]
